FAERS Safety Report 9146787 (Version 1)
Quarter: 2013Q1

REPORT INFORMATION
  Report Type: Spontaneous
  Country: CZ (occurrence: None)
  Receive Date: 20130206
  Receipt Date: 20130206
  Transmission Date: 20140127
  Serious: Yes (Death)
  Sender: FDA-Public Use
  Company Number: FK201300325

PATIENT
  Age: 67 Year
  Sex: Male

DRUGS (1)
  1. DEXAMETHASONE [Suspect]
     Indication: DIURETIC THERAPY

REACTIONS (3)
  - Bronchopulmonary aspergillosis [None]
  - General physical health deterioration [None]
  - Pneumothorax [None]
